FAERS Safety Report 16164687 (Version 3)
Quarter: 2019Q2

REPORT INFORMATION
  Report Type: Report from Study
  Country: CO (occurrence: CO)
  Receive Date: 20190405
  Receipt Date: 20190517
  Transmission Date: 20190711
  Serious: Yes (Hospitalization)
  Sender: FDA-Public Use
  Company Number: CO-INCYTE CORPORATION-2019IN003373

PATIENT

DRUGS (2)
  1. JAKAVI [Suspect]
     Active Substance: RUXOLITINIB
     Dosage: 40 MG
     Route: 048
  2. JAKAVI [Suspect]
     Active Substance: RUXOLITINIB
     Indication: MYELOFIBROSIS
     Dosage: 20 MG, BID
     Route: 048
     Dates: start: 20181120, end: 20190329

REACTIONS (4)
  - Pyrexia [Unknown]
  - Loss of consciousness [Unknown]
  - Vomiting [Unknown]
  - Inappropriate schedule of product administration [Unknown]
